FAERS Safety Report 9916623 (Version 3)
Quarter: 2014Q2

REPORT INFORMATION
  Report Type: Spontaneous
  Country: DE (occurrence: None)
  Receive Date: 20140219
  Receipt Date: 20140619
  Transmission Date: 20141212
  Serious: Yes (Death, Hospitalization)
  Sender: FDA-Public Use
  Company Number: AUR-APL-2014-01593

PATIENT
  Age: 80 Year
  Sex: Female
  Weight: 65 kg

DRUGS (14)
  1. METFORMIN [Suspect]
     Indication: TYPE 2 DIABETES MELLITUS
     Dosage: 1000 MG (500 MG, 2 IN 1 D), ORAL?
     Route: 048
     Dates: start: 2011, end: 201401
  2. ONGLYZA (SAXAGLIPTIN HYDROCHLORIDE) [Suspect]
     Indication: TYPE 2 DIABETES MELLITUS
     Dosage: 5 MG (5 MG , 1 IN 1 D), ORAL
     Route: 048
     Dates: start: 201309, end: 201401
  3. MADOPAR (MADOPAR) [Concomitant]
  4. MIRTAZAPIN (MIRTAZAPINE) [Concomitant]
  5. ROPINIROL (ROPINIROLE HYDROCHLORIDE) [Concomitant]
  6. GABAPENTIN (GABAPENTIN) [Concomitant]
  7. ATORVASTATIN (ATORVASTATIN) [Concomitant]
  8. PANTOPRAZOL (PANTOPRAZOLE SODIUM SESQUIHYDRATE) [Concomitant]
  9. NOVALGIN (NOVO-PETRIN) [Concomitant]
  10. TILIDIN (VALORON N/00628301/) [Concomitant]
  11. FOLSAEURE (FOLIC ACID) [Concomitant]
  12. MCP (METOCLOPRAMIDE) [Concomitant]
  13. KALINOR (POTASSIUM CHLORIDE) [Concomitant]
  14. ACTRAPHANE (HUMAN MIXTARD) [Concomitant]

REACTIONS (1)
  - Pancreatitis acute [None]
